FAERS Safety Report 7236306-0 (Version None)
Quarter: 2011Q1

REPORT INFORMATION
  Report Type: 
  Country: None (occurrence: None)
  Receive Date: 20110120
  Receipt Date: 20110110
  Transmission Date: 20110831
  Serious: Yes (Hospitalization, Other)
  Sender: FDA-Public Use
  Company Number: US-ELI_LILLY_AND_COMPANY-US200910006925

PATIENT
  Sex: Female

DRUGS (31)
  1. FORTEO [Suspect]
     Indication: OSTEOPOROSIS
     Dosage: 20 UG, DAILY (1/D)
     Route: 058
     Dates: start: 20090816, end: 20101201
  2. IRON [Concomitant]
  3. POTASSIUM [Concomitant]
  4. VERAPAMIL [Concomitant]
  5. LOPRESSOR [Concomitant]
     Dosage: UNK, UNKNOWN
     Route: 065
  6. ALBUTEROL SULFATE [Concomitant]
     Dosage: UNK, UNKNOWN
     Route: 055
  7. PERCOCET [Concomitant]
     Dosage: UNK, UNKNOWN
     Route: 065
  8. CULTURELLE [Concomitant]
     Dosage: UNK, UNKNOWN
     Route: 065
  9. ASCORBIC ACID [Concomitant]
  10. EPIVIR [Concomitant]
     Dosage: UNK, UNKNOWN
     Route: 065
  11. VITAMIN D [Concomitant]
  12. OSCAL 500-D [Concomitant]
  13. SPORANOX [Concomitant]
     Dosage: UNK, UNKNOWN
     Route: 065
  14. PRILOSEC [Concomitant]
     Dosage: UNK, UNKNOWN
     Route: 065
  15. FOLIC ACID [Concomitant]
     Dosage: UNK, UNKNOWN
     Route: 065
  16. ZAPONEX [Concomitant]
  17. IPRATROPIUM BROMIDE [Concomitant]
  18. ASPIRIN [Concomitant]
  19. BACTRIM [Concomitant]
     Dosage: UNK, UNKNOWN
     Route: 065
  20. AZITHROMYCIN [Concomitant]
     Dosage: UNK, UNKNOWN
     Route: 065
  21. MULTI-VITAMIN [Concomitant]
     Dosage: UNK, UNKNOWN
     Route: 065
  22. MAGNESIUM [Concomitant]
     Dosage: UNK, UNKNOWN
     Route: 065
  23. SPIRIVA [Concomitant]
     Dosage: UNK, UNKNOWN
     Route: 065
  24. METOLAZONE [Concomitant]
  25. LORATADINE [Concomitant]
  26. COUMADIN [Concomitant]
  27. MUCINEX [Concomitant]
  28. PROGRAF [Concomitant]
     Dosage: UNK, UNKNOWN
     Route: 065
  29. ADVAIR [Concomitant]
  30. PREDNISONE [Concomitant]
  31. ABELCET [Concomitant]
     Dosage: UNK, UNKNOWN
     Route: 065

REACTIONS (3)
  - PNEUMONIA [None]
  - CHRONIC OBSTRUCTIVE PULMONARY DISEASE [None]
  - DYSPNOEA [None]
